FAERS Safety Report 14874506 (Version 1)
Quarter: 2018Q2

REPORT INFORMATION
  Report Type: Spontaneous
  Country: US (occurrence: US)
  Receive Date: 20180424
  Receipt Date: 20180424
  Transmission Date: 20180711
  Serious: Yes (Hospitalization)
  Sender: FDA-Public Use
  Company Number: None

PATIENT
  Age: 71 Year
  Sex: Female

DRUGS (6)
  1. CARB/LEVO [Concomitant]
     Active Substance: CARBIDOPA\LEVODOPA
  2. LORAZEPAM. [Concomitant]
     Active Substance: LORAZEPAM
  3. NORTHERA [Suspect]
     Active Substance: DROXIDOPA
     Indication: PARKINSON^S DISEASE
     Route: 048
     Dates: start: 20160902
  4. ENTACAPONE. [Concomitant]
     Active Substance: ENTACAPONE
  5. FLUDROCORT [Concomitant]
  6. RASAGILINE. [Concomitant]
     Active Substance: RASAGILINE

REACTIONS (3)
  - Drug dose omission [None]
  - Fall [None]
  - Balance disorder [None]

NARRATIVE: CASE EVENT DATE: 201804
